FAERS Safety Report 5779255-7 (Version None)
Quarter: 2008Q2

REPORT INFORMATION
  Report Type: 
  Country: None (occurrence: None)
  Receive Date: 20080619
  Receipt Date: 20080605
  Transmission Date: 20081010
  Serious: No
  Sender: FDA-Public Use
  Company Number: US-JNJFOC-20080602325

PATIENT
  Age: 39 Year
  Sex: Male

DRUGS (1)
  1. INVEGA [Suspect]
     Indication: PSYCHOTIC DISORDER

REACTIONS (2)
  - DRUG INEFFECTIVE [None]
  - TREATMENT NONCOMPLIANCE [None]
